FAERS Safety Report 6619368-0 (Version None)
Quarter: 2010Q1

REPORT INFORMATION
  Report Type: 
  Country: None (occurrence: None)
  Receive Date: 20100303
  Receipt Date: 20100216
  Transmission Date: 20100710
  Serious: Yes (Death)
  Sender: FDA-Public Use
  Company Number: 1000011557

PATIENT
  Age: 70 Year
  Sex: Female

DRUGS (3)
  1. MEMANTINE HCL [Suspect]
     Indication: DEMENTIA ALZHEIMER'S TYPE
     Dosage: 20 MG (20 MG,ONCE DAILY AFTER BREAKFAST),ORAL
     Route: 048
     Dates: start: 20060704, end: 20091121
  2. DONEPEZIL HCL [Concomitant]
  3. TPN [Concomitant]

REACTIONS (12)
  - BLOOD ALBUMIN DECREASED [None]
  - BLOOD CHLORIDE INCREASED [None]
  - BLOOD CHOLESTEROL DECREASED [None]
  - BLOOD CREATININE INCREASED [None]
  - BLOOD LACTATE DEHYDROGENASE INCREASED [None]
  - BLOOD SODIUM INCREASED [None]
  - BLOOD UREA INCREASED [None]
  - GENERAL PHYSICAL CONDITION ABNORMAL [None]
  - INFLUENZA [None]
  - PROTEIN TOTAL DECREASED [None]
  - SHOCK [None]
  - UNRESPONSIVE TO STIMULI [None]
